FAERS Safety Report 9663859 (Version 1)
Quarter: 2013Q4

REPORT INFORMATION
  Report Type: Spontaneous
  Country: US (occurrence: None)
  Receive Date: 20131030
  Receipt Date: 20131030
  Transmission Date: 20140711
  Serious: No
  Sender: FDA-Public Use
  Company Number: None

PATIENT
  Age: 82 Year
  Sex: Female
  Weight: 49.9 kg

DRUGS (3)
  1. LEVOFLOXACIN [Suspect]
     Indication: NASOPHARYNGITIS
     Dosage: 500 ML 1 TABLET 1 TIME A DAY BY MOUTH
     Route: 048
     Dates: start: 20130330, end: 20130409
  2. ADVIL LIQUID-GELS [Concomitant]
  3. B COMPLEX WITH FOLIC ACID + VIT C [Concomitant]

REACTIONS (4)
  - Pain [None]
  - Swelling [None]
  - Asthenia [None]
  - Immobile [None]
